FAERS Safety Report 14924823 (Version 2)
Quarter: 2018Q2

REPORT INFORMATION
  Report Type: Spontaneous
  Country: CN (occurrence: CN)
  Receive Date: 20180522
  Receipt Date: 20180531
  Transmission Date: 20180711
  Serious: Yes (Other)
  Sender: FDA-Public Use
  Company Number: CN-FERRINGPH-2018FE02398

PATIENT

DRUGS (1)
  1. PROPESS [Suspect]
     Active Substance: DINOPROSTONE
     Indication: INDUCTION OF CERVIX RIPENING
     Dosage: 10 MG, ONCE/SINGLE
     Route: 067
     Dates: start: 20180427, end: 20180427

REACTIONS (1)
  - Precipitate labour [Recovered/Resolved]

NARRATIVE: CASE EVENT DATE: 20180427
